FAERS Safety Report 17001695 (Version 1)
Quarter: 2019Q4

REPORT INFORMATION
  Report Type: Report from Study
  Country: CA (occurrence: CA)
  Receive Date: 20191106
  Receipt Date: 20191106
  Transmission Date: 20200122
  Serious: Yes (Life-Threatening, Hospitalization)
  Sender: FDA-Public Use
  Company Number: CA-PFIZER INC-2019475992

PATIENT
  Age: 63 Year
  Sex: Male

DRUGS (22)
  1. LORAZEPAM. [Concomitant]
     Active Substance: LORAZEPAM
     Dosage: UNK
  2. PANCREATIN [Concomitant]
     Active Substance: PANCRELIPASE
     Dosage: UNK
  3. ZOLADEX [Concomitant]
     Active Substance: GOSERELIN ACETATE
     Dosage: UNK
  4. ACETAMINOPHEN. [Concomitant]
     Active Substance: ACETAMINOPHEN
     Dosage: UNK
  5. DOCETAXEL. [Suspect]
     Active Substance: DOCETAXEL
     Dosage: 60 MG/M2, EVERY 3 WEEKS
     Route: 041
  6. BENZYDAMINE [Concomitant]
     Active Substance: BENZYDAMINE
     Dosage: UNK
  7. BETAMETHASONE. [Concomitant]
     Active Substance: BETAMETHASONE
     Dosage: UNK
  8. HYDROMORPHONE [Concomitant]
     Active Substance: HYDROMORPHONE
     Dosage: UNK
  9. ONDANSETRON [Concomitant]
     Active Substance: ONDANSETRON
     Dosage: UNK
  10. DEXAMETHASONE. [Concomitant]
     Active Substance: DEXAMETHASONE
     Dosage: UNK
  11. LOMOTIL [LOPERAMIDE HYDROCHLORIDE] [Concomitant]
     Dosage: UNK
  12. TENOFOVIR [Concomitant]
     Active Substance: TENOFOVIR
     Dosage: UNK
  13. DOMPERIDONE [Concomitant]
     Active Substance: DOMPERIDONE
     Dosage: UNK
  14. PREDNISONE. [Concomitant]
     Active Substance: PREDNISONE
     Dosage: UNK
  15. DOCETAXEL. [Suspect]
     Active Substance: DOCETAXEL
     Indication: PROSTATE CANCER
     Dosage: 75 MG/M2, EVERY 3 WEEKS
     Route: 041
  16. BUPROPION. [Concomitant]
     Active Substance: BUPROPION
     Dosage: UNK
  17. HEMCORT HC [Concomitant]
     Dosage: UNK
  18. PANTOPRAZOLE [Concomitant]
     Active Substance: PANTOPRAZOLE
     Dosage: UNK
  19. ZOPICLONE [Concomitant]
     Active Substance: ZOPICLONE
     Dosage: UNK
  20. HYDROMORPH CONTIN [Concomitant]
     Active Substance: HYDROMORPHONE
     Dosage: UNK
  21. LOPERAMIDE [Concomitant]
     Active Substance: LOPERAMIDE
     Dosage: UNK
  22. TRIMEBUTINE [Concomitant]
     Active Substance: TRIMEBUTINE
     Dosage: UNK

REACTIONS (5)
  - Vomiting [Recovered/Resolved]
  - Neutropenic infection [Recovered/Resolved]
  - Pulmonary embolism [Recovered/Resolved]
  - Nausea [Recovered/Resolved]
  - Candida infection [Recovered/Resolved]
